FAERS Safety Report 9679176 (Version 1)
Quarter: 2013Q4

REPORT INFORMATION
  Report Type: Spontaneous
  Country: US (occurrence: US)
  Receive Date: 20131108
  Receipt Date: 20131108
  Transmission Date: 20140711
  Serious: Yes (Hospitalization)
  Sender: FDA-Public Use
  Company Number: US-BAXTER-2013BAX043451

PATIENT
  Age: 46 Year
  Sex: Female

DRUGS (1)
  1. TISSEEL VH S/D [Suspect]
     Indication: HYSTERECTOMY
     Route: 061
     Dates: start: 201310, end: 201310

REACTIONS (16)
  - Chills [Recovered/Resolved]
  - Pyrexia [Recovered/Resolved]
  - Leukocytosis [Not Recovered/Not Resolved]
  - Decreased appetite [Unknown]
  - Blood potassium decreased [Recovered/Resolved]
  - Cold sweat [Recovered/Resolved]
  - General physical condition abnormal [Recovered/Resolved]
  - Nausea [Recovered/Resolved]
  - Vomiting [Recovered/Resolved]
  - Chest discomfort [Recovered/Resolved]
  - Paraesthesia [Recovered/Resolved]
  - Burning sensation [Recovered/Resolved]
  - Lethargy [Recovering/Resolving]
  - Post procedural discharge [Unknown]
  - Hypoaesthesia [Unknown]
  - Hypoaesthesia [Unknown]
